FAERS Safety Report 4428610-6 (Version None)
Quarter: 2004Q3

REPORT INFORMATION
  Report Type: 
  Country: None (occurrence: None)
  Receive Date: 20040813
  Receipt Date: 20040804
  Transmission Date: 20050211
  Serious: Yes (Hospitalization)
  Sender: FDA-Public Use
  Company Number: OMPQ-NO-0408S-1075

PATIENT
  Age: 7 Month
  Sex: Female
  Weight: 5 kg

DRUGS (1)
  1. OMNIPAQUE 180 [Suspect]
     Indication: CATHETER PLACEMENT
     Dosage: 40 ML, SINGLE DOSE, I.A.
     Dates: start: 20040731, end: 20040731

REACTIONS (4)
  - HEPATIC FAILURE [None]
  - HYPOGLYCAEMIA [None]
  - SHOCK [None]
  - WHEEZING [None]
